FAERS Safety Report 9730236 (Version 8)
Quarter: 2019Q2

REPORT INFORMATION
  Report Type: Report from Study
  Country: US (occurrence: US)
  Receive Date: 20131202
  Receipt Date: 20190430
  Transmission Date: 20190711
  Serious: Yes (Other)
  Sender: FDA-Public Use
  Company Number: US-ROCHE-1308835

PATIENT
  Age: 52 Year
  Sex: Male
  Weight: 116.22 kg

DRUGS (12)
  1. ANDROGEL [Concomitant]
     Active Substance: TESTOSTERONE
     Dosage: 4 PUMPS
     Route: 061
     Dates: start: 201206
  2. ANDROGEL [Concomitant]
     Active Substance: TESTOSTERONE
     Dosage: APPLY 1 PUMPS BY TOPICAL ROUTE EVERY  MORNING TO EACH UPPER ARM AND SHOLDER FOR A TOATAL DOSE OF 20.
     Route: 061
     Dates: start: 20161020, end: 20170211
  3. CYMBALTA [Concomitant]
     Active Substance: DULOXETINE HYDROCHLORIDE
     Route: 048
     Dates: start: 20141231
  4. NUTROPIN AQ [Suspect]
     Active Substance: SOMATROPIN
     Indication: HYPOPITUITARISM
     Dosage: 7 INJ/WEEK
     Route: 058
  5. AMLODIPINE [Concomitant]
     Active Substance: AMLODIPINE BESYLATE
     Route: 048
     Dates: start: 20141231
  6. NORCO [Concomitant]
     Active Substance: ACETAMINOPHEN\HYDROCODONE BITARTRATE
     Dosage: 7.5/3.25 MG PRN
     Route: 048
     Dates: start: 20141231
  7. NUTROPIN AQ [Suspect]
     Active Substance: SOMATROPIN
     Indication: GROWTH HORMONE DEFICIENCY
     Route: 058
  8. TAMIFLU [Suspect]
     Active Substance: OSELTAMIVIR PHOSPHATE
     Indication: PRODUCT USED FOR UNKNOWN INDICATION
     Route: 065
  9. ANDROGEL [Concomitant]
     Active Substance: TESTOSTERONE
     Dosage: 1 PUMPS
     Route: 061
  10. NUTROPIN AQ [Suspect]
     Active Substance: SOMATROPIN
     Dosage: 09/NOV/2018
     Route: 058
  11. AMBIEN [Concomitant]
     Active Substance: ZOLPIDEM TARTRATE
     Dosage: HS PRN
     Route: 048
     Dates: start: 20141231
  12. XANAX [Concomitant]
     Active Substance: ALPRAZOLAM
     Dosage: PRN
     Route: 048

REACTIONS (20)
  - Sleep apnoea syndrome [Unknown]
  - Sex hormone binding globulin increased [Unknown]
  - Blood urea increased [Unknown]
  - Blood glucose increased [Unknown]
  - Insulin resistance [Unknown]
  - Blood follicle stimulating hormone increased [Unknown]
  - Weight increased [Unknown]
  - Blood testosterone increased [Unknown]
  - Malaise [Unknown]
  - Blood triglycerides increased [Unknown]
  - Blood alkaline phosphatase increased [Unknown]
  - Headache [Unknown]
  - Aspartate aminotransferase increased [Unknown]
  - Fatigue [Recovered/Resolved]
  - Weight decreased [Unknown]
  - Back pain [Unknown]
  - High density lipoprotein decreased [Unknown]
  - Alanine aminotransferase increased [Unknown]
  - Anger [Unknown]
  - Constipation [Unknown]

NARRATIVE: CASE EVENT DATE: 201309
